FAERS Safety Report 17559896 (Version 1)
Quarter: 2020Q1

REPORT INFORMATION
  Report Type: Spontaneous
  Country: CA (occurrence: CA)
  Receive Date: 20200319
  Receipt Date: 20200319
  Transmission Date: 20200409
  Serious: Yes (Hospitalization)
  Sender: FDA-Public Use
  Company Number: CA-ACCORD-176209

PATIENT
  Age: 64 Year
  Sex: Female

DRUGS (22)
  1. AMLODIPINE [Concomitant]
     Active Substance: AMLODIPINE BESYLATE
  2. MUPIROCIN/MUPIROCIN CALCIUM [Concomitant]
     Active Substance: MUPIROCIN\MUPIROCIN CALCIUM
     Dosage: OINTMENT TOPICAL
  3. ACETYLSALICYLIC ACID [Concomitant]
     Active Substance: ASPIRIN
  4. CRESTOR [Concomitant]
     Active Substance: ROSUVASTATIN CALCIUM
  5. CITALOPRAM [Concomitant]
     Active Substance: CITALOPRAM HYDROBROMIDE
  6. PANTOPRAZOLE [Concomitant]
     Active Substance: PANTOPRAZOLE
  7. ARANESP [Concomitant]
     Active Substance: DARBEPOETIN ALFA
     Dosage: SOLUTION INTRAVENOUS
  8. RENAVIT [Concomitant]
  9. URSODIOL. [Concomitant]
     Active Substance: URSODIOL
  10. TOCOPHEROL [Concomitant]
     Active Substance: TOCOPHEROL
  11. FLUCONAZOLE. [Concomitant]
     Active Substance: FLUCONAZOLE
  12. LACTULOSE. [Concomitant]
     Active Substance: LACTULOSE
  13. RAMIPRIL. [Concomitant]
     Active Substance: RAMIPRIL
  14. NPH INSULIN [Concomitant]
     Active Substance: INSULIN BEEF
  15. METRONIDAZOLE. [Concomitant]
     Active Substance: METRONIDAZOLE
  16. ALFACALCIDOL [Concomitant]
     Active Substance: ALFACALCIDOL
  17. ROSUVASTATIN. [Suspect]
     Active Substance: ROSUVASTATIN
     Indication: CORONARY ARTERY DISEASE
     Route: 048
  18. IRON [Concomitant]
     Active Substance: IRON
  19. HYDROXYZINE [Concomitant]
     Active Substance: HYDROXYZINE HYDROCHLORIDE
  20. SYNTHROID [Concomitant]
     Active Substance: LEVOTHYROXINE SODIUM
  21. DOXYCYCLINE. [Concomitant]
     Active Substance: DOXYCYCLINE
  22. GABAPENTIN. [Concomitant]
     Active Substance: GABAPENTIN

REACTIONS (3)
  - Hyponatraemia [Unknown]
  - Asthenia [Unknown]
  - Rhabdomyolysis [Unknown]
